FAERS Safety Report 19684175 (Version 1)
Quarter: 2021Q3

REPORT INFORMATION
  Report Type: Spontaneous
  Country: JP (occurrence: JP)
  Receive Date: 20210811
  Receipt Date: 20210811
  Transmission Date: 20211014
  Serious: Yes (Other)
  Sender: FDA-Public Use
  Company Number: JP-ALLERGAN-2127552US

PATIENT
  Sex: Female

DRUGS (3)
  1. ACICLOVIR [Concomitant]
     Active Substance: ACYCLOVIR
  2. FLUOROMETHOLONE 0.1% EYEDROPS [Suspect]
     Active Substance: FLUOROMETHOLONE
     Indication: CORNEAL LESION
     Dosage: UNK
  3. VALACICLOVIR [Concomitant]
     Active Substance: VALACYCLOVIR HYDROCHLORIDE

REACTIONS (2)
  - Blindness unilateral [Unknown]
  - Corneal perforation [Unknown]
